FAERS Safety Report 24574497 (Version 4)
Quarter: 2024Q4

REPORT INFORMATION
  Report Type: Spontaneous
  Country: JP (occurrence: JP)
  Receive Date: 20241104
  Receipt Date: 20241220
  Transmission Date: 20250114
  Serious: Yes (Hospitalization, Other)
  Sender: GLAXOSMITHKLINE
  Company Number: JP-GLAXOSMITHKLINE INC-JP2024JPN133856

PATIENT

DRUGS (8)
  1. BENLYSTA [Suspect]
     Active Substance: BELIMUMAB
     Indication: Systemic lupus erythematosus
     Dosage: 400 MG
     Route: 041
     Dates: start: 20230206
  2. PREDNISOLONE [Suspect]
     Active Substance: PREDNISOLONE
     Indication: Systemic lupus erythematosus
     Dosage: 15 MG
  3. PREDNISOLONE [Suspect]
     Active Substance: PREDNISOLONE
     Dosage: 30 MG, QD
  4. CYCLOPHOSPHAMIDE [Concomitant]
     Active Substance: CYCLOPHOSPHAMIDE
     Dosage: UNK
  5. METHYLPREDNISOLONE [Concomitant]
     Active Substance: METHYLPREDNISOLONE
     Dosage: UNK
  6. RITUXIMAB [Concomitant]
     Active Substance: RITUXIMAB
     Dosage: UNK
  7. TACROLIMUS [Concomitant]
     Active Substance: TACROLIMUS
     Indication: Lupus nephritis
     Dosage: UNK
  8. MYCOPHENOLATE MOFETIL [Concomitant]
     Active Substance: MYCOPHENOLATE MOFETIL
     Indication: Lupus nephritis
     Dosage: UNK

REACTIONS (7)
  - Pneumatosis intestinalis [Recovered/Resolved]
  - Ileus [Unknown]
  - Large intestinal ulcer [Not Recovered/Not Resolved]
  - Gastrointestinal oedema [Recovering/Resolving]
  - Intestinal stenosis [Recovering/Resolving]
  - Lupus enteritis [Unknown]
  - Therapeutic response decreased [Unknown]

NARRATIVE: CASE EVENT DATE: 20230616
